FAERS Safety Report 12368383 (Version 1)
Quarter: 2016Q2

REPORT INFORMATION
  Report Type: Spontaneous
  Country: US (occurrence: US)
  Receive Date: 20160513
  Receipt Date: 20160513
  Transmission Date: 20160815
  Serious: No
  Sender: FDA-Public Use
  Company Number: US-PFIZER INC-2016240513

PATIENT
  Age: 74 Year
  Sex: Female
  Weight: 104.3 kg

DRUGS (3)
  1. SYNTHROID [Concomitant]
     Active Substance: LEVOTHYROXINE SODIUM
     Indication: HYPOTHYROIDISM
     Dosage: 1.75 TABLET ONCE DAILY
  2. ADVIL [Suspect]
     Active Substance: IBUPROFEN
     Indication: FRACTURE
  3. ADVIL [Suspect]
     Active Substance: IBUPROFEN
     Indication: FALL
     Dosage: 1 GELCAPS AS NEEDED
     Dates: start: 201604, end: 201604

REACTIONS (5)
  - Pain [Recovering/Resolving]
  - Eructation [Recovering/Resolving]
  - Gastrooesophageal reflux disease [Unknown]
  - Product use issue [Recovered/Resolved]
  - Muscle spasms [Recovering/Resolving]

NARRATIVE: CASE EVENT DATE: 201604
